FAERS Safety Report 12310375 (Version 1)
Quarter: 2016Q2

REPORT INFORMATION
  Report Type: Spontaneous
  Country: US (occurrence: None)
  Receive Date: 20160426
  Receipt Date: 20160426
  Transmission Date: 20160815
  Serious: Yes (Disabling, Other)
  Sender: FDA-Public Use
  Company Number: None

PATIENT
  Age: 65 Year
  Sex: Male
  Weight: 123.38 kg

DRUGS (10)
  1. EMSAM SELEGILENE TRANSDERMAL PATCH [Concomitant]
  2. TESTOSTERONE. [Concomitant]
     Active Substance: TESTOSTERONE
  3. OCUVITE [Concomitant]
     Active Substance: VITAMINS
  4. LORAZEPAM. [Concomitant]
     Active Substance: LORAZEPAM
  5. VITAMIN D3 [Concomitant]
     Active Substance: CHOLECALCIFEROL
  6. QVAR [Suspect]
     Active Substance: BECLOMETHASONE DIPROPIONATE
     Indication: UPPER RESPIRATORY TRACT INFECTION
     Route: 055
     Dates: start: 20150223, end: 20150227
  7. RESTASIS [Concomitant]
     Active Substance: CYCLOSPORINE
  8. CIALIS [Concomitant]
     Active Substance: TADALAFIL
  9. OLANZAPINE. [Concomitant]
     Active Substance: OLANZAPINE
  10. TEARS AGAIN HYDRATE EYE FORMULATION [Concomitant]

REACTIONS (1)
  - Anosmia [None]

NARRATIVE: CASE EVENT DATE: 20150223
